FAERS Safety Report 20459451 (Version 3)
Quarter: 2022Q1

REPORT INFORMATION
  Report Type: Spontaneous
  Country: DE (occurrence: DE)
  Receive Date: 20220211
  Receipt Date: 20220303
  Transmission Date: 20220424
  Serious: Yes (Hospitalization)
  Sender: FDA-Public Use
  Company Number: DE-ADRED-00034-01

PATIENT
  Age: 62 Year
  Sex: Female
  Weight: 45 kg

DRUGS (207)
  1. SIMVASTATIN [Interacting]
     Active Substance: SIMVASTATIN
     Indication: Product used for unknown indication
     Dosage: 40 MG, QD (0-0-1-0)
     Route: 048
  2. SIMVASTATIN [Interacting]
     Active Substance: SIMVASTATIN
     Dosage: 40 MG, QD (0-0-1-0)
     Route: 048
  3. SIMVASTATIN [Interacting]
     Active Substance: SIMVASTATIN
     Dosage: 40 MG, QD (0-0-1-0)
     Route: 048
  4. SIMVASTATIN [Interacting]
     Active Substance: SIMVASTATIN
     Dosage: 40 MG, QD (0-0-1-0)
     Route: 048
  5. SIMVASTATIN [Interacting]
     Active Substance: SIMVASTATIN
     Dosage: 40 MG, QD (0-0-1-0)
     Route: 048
  6. SIMVASTATIN [Interacting]
     Active Substance: SIMVASTATIN
     Dosage: 40 MG, QD
     Route: 048
  7. EZETIMIBE [Suspect]
     Active Substance: EZETIMIBE
     Indication: Product used for unknown indication
     Dosage: 10 MG, QD (1-0-0-0)
     Route: 048
  8. EZETIMIBE [Suspect]
     Active Substance: EZETIMIBE
     Indication: Product used for unknown indication
     Dosage: 10 MG, QD
     Route: 048
  9. EZETIMIBE [Suspect]
     Active Substance: EZETIMIBE
     Dosage: 10 MG, QD
     Route: 048
  10. EZETIMIBE [Suspect]
     Active Substance: EZETIMIBE
     Dosage: 10 MG, QD
     Route: 048
  11. EZETIMIBE [Suspect]
     Active Substance: EZETIMIBE
     Dosage: 10 MG, QD
     Route: 048
  12. EZETIMIBE [Suspect]
     Active Substance: EZETIMIBE
     Dosage: 10 MG, QD
     Route: 048
  13. AZATHIOPRINE [Suspect]
     Active Substance: AZATHIOPRINE
     Indication: Product used for unknown indication
     Dosage: 50 MG, QD
     Route: 048
  14. AZATHIOPRINE [Suspect]
     Active Substance: AZATHIOPRINE
     Dosage: 50 MG, QD
     Route: 048
  15. AZATHIOPRINE [Suspect]
     Active Substance: AZATHIOPRINE
     Dosage: 50 MG,UNK
     Route: 048
  16. AZATHIOPRINE [Suspect]
     Active Substance: AZATHIOPRINE
     Dosage: 50 MG,QD
     Route: 048
  17. AZATHIOPRINE [Suspect]
     Active Substance: AZATHIOPRINE
     Dosage: 50 MG,QD
     Route: 048
  18. AZATHIOPRINE [Suspect]
     Active Substance: AZATHIOPRINE
     Dosage: (50 MILLIGRAM(S)) IN 1 DAY
     Route: 048
  19. AZATHIOPRINE [Suspect]
     Active Substance: AZATHIOPRINE
     Dosage: (50 MILLIGRAM(S)) IN 1 DAY
  20. LACTULOSE [Interacting]
     Active Substance: LACTULOSE
     Indication: Product used for unknown indication
     Dosage: 1 DF, QD
     Route: 048
  21. LACTULOSE [Interacting]
     Active Substance: LACTULOSE
     Dosage: 1 DF, QD
     Route: 048
  22. LACTULOSE [Interacting]
     Active Substance: LACTULOSE
     Dosage: 1 DF, QD, 1 MEASURING CUP
     Route: 048
  23. LACTULOSE [Interacting]
     Active Substance: LACTULOSE
     Dosage: 1 UNK, UNK
     Route: 048
  24. LACTULOSE [Interacting]
     Active Substance: LACTULOSE
     Dosage: 1 DF, QD
     Route: 048
  25. LACTULOSE [Interacting]
     Active Substance: LACTULOSE
     Dosage: 1 DF, QD
     Route: 048
  26. LACTULOSE [Interacting]
     Active Substance: LACTULOSE
     Dosage: 1 DF, QD, 1 MEASURING CUP
     Route: 048
  27. LACTULOSE [Interacting]
     Active Substance: LACTULOSE
     Dosage: 1 UNK, UNK
     Route: 048
  28. LACTULOSE [Interacting]
     Active Substance: LACTULOSE
     Dosage: 1 DF, QD
     Route: 048
  29. AMBROXOL HYDROCHLORIDE [Interacting]
     Active Substance: AMBROXOL HYDROCHLORIDE
     Indication: Product used for unknown indication
     Dosage: 30 GTT DROPS, PRN ; AS NECESSARY
     Route: 048
  30. AMBROXOL HYDROCHLORIDE [Interacting]
     Active Substance: AMBROXOL HYDROCHLORIDE
     Dosage: UNK (REQUIREMENT, AS NECESSARY) (UNK [30 DROP (1/12 MILILITER) UNK)
     Route: 048
  31. AMBROXOL HYDROCHLORIDE [Interacting]
     Active Substance: AMBROXOL HYDROCHLORIDE
     Dosage: 30 GTT DROPS, PRN ; AS NECESSARY
     Route: 048
  32. AMBROXOL HYDROCHLORIDE [Interacting]
     Active Substance: AMBROXOL HYDROCHLORIDE
     Dosage: 30 GTT DROPS, PRN ; AS NECESSARY
     Route: 048
  33. AMBROXOL HYDROCHLORIDE [Interacting]
     Active Substance: AMBROXOL HYDROCHLORIDE
     Dosage: 30 GTT DROPS, PRN ; AS NECESSARY
     Route: 048
  34. AMBROXOL HYDROCHLORIDE [Interacting]
     Active Substance: AMBROXOL HYDROCHLORIDE
     Dosage: 30 DF, PRN
  35. MAGNESIUM [Suspect]
     Active Substance: MAGNESIUM
     Indication: Product used for unknown indication
     Dosage: 2 DF, QD (2-0-0-0)
     Route: 048
  36. MAGNESIUM [Suspect]
     Active Substance: MAGNESIUM
     Dosage: 1 DF, QD
     Route: 048
  37. MAGNESIUM [Suspect]
     Active Substance: MAGNESIUM
     Dosage: UNK UNK, BID
     Route: 048
  38. MAGNESIUM [Suspect]
     Active Substance: MAGNESIUM
     Dosage: 2 DF, QD
     Route: 048
  39. MAGNESIUM [Suspect]
     Active Substance: MAGNESIUM
     Dosage: 2 DF, QD
     Route: 048
  40. MAGNESIUM [Suspect]
     Active Substance: MAGNESIUM
     Dosage: 2 DF, QD
     Route: 048
  41. MAGNESIUM [Suspect]
     Active Substance: MAGNESIUM
     Dosage: 1 DOSAGE FORM) IN 1 DAY
     Route: 048
  42. MAGNESIUM [Suspect]
     Active Substance: MAGNESIUM
     Dosage: (2 DOSAGE FORM) IN 1 DAY
     Route: 048
  43. MAGNESIUM [Suspect]
     Active Substance: MAGNESIUM
     Dosage: UNK, Q12H (IN 12 HOUR)
     Route: 048
  44. MAGNESIUM [Suspect]
     Active Substance: MAGNESIUM
     Dosage: UNK UNK, Q12H (IN 12 HOUR)
     Route: 048
  45. SPIRONOLACTONE [Suspect]
     Active Substance: SPIRONOLACTONE
     Indication: Product used for unknown indication
     Dosage: 200 MG, BID
     Route: 048
  46. SPIRONOLACTONE [Suspect]
     Active Substance: SPIRONOLACTONE
     Dosage: 100 MG, BID
     Route: 048
  47. SPIRONOLACTONE [Suspect]
     Active Substance: SPIRONOLACTONE
     Dosage: 100 MG, QD
     Route: 048
  48. SPIRONOLACTONE [Suspect]
     Active Substance: SPIRONOLACTONE
     Dosage: 200 MG, BID
     Route: 048
  49. SPIRONOLACTONE [Suspect]
     Active Substance: SPIRONOLACTONE
     Dosage: 200 MG, BID
     Route: 048
  50. SPIRONOLACTONE [Suspect]
     Active Substance: SPIRONOLACTONE
     Dosage: 100 MG, BID (2-0-0-0) (ALSO REPORTED AS 200 MG, QD)
     Route: 048
  51. SPIRONOLACTONE [Suspect]
     Active Substance: SPIRONOLACTONE
     Dosage: 2 DOSAGE FORM (DF), QD
     Route: 048
  52. SPIRONOLACTONE [Suspect]
     Active Substance: SPIRONOLACTONE
     Dosage: (200 MILLIGRAM(S)) IN 12 HOUR
     Route: 048
  53. SPIRONOLACTONE [Suspect]
     Active Substance: SPIRONOLACTONE
     Dosage: 100 MG, BID
     Route: 048
  54. PANTOZOL [Suspect]
     Active Substance: PANTOPRAZOLE SODIUM
     Indication: Product used for unknown indication
     Dosage: 40 MG, QD (1-0-0-0)
     Route: 048
  55. PANTOZOL [Suspect]
     Active Substance: PANTOPRAZOLE SODIUM
     Dosage: 40.0 MILLIGRAM(S) (40 MILLIGRAM(S)),1 IN 1 DAY
     Route: 048
  56. FUROSEMIDE [Interacting]
     Active Substance: FUROSEMIDE
     Indication: Product used for unknown indication
     Dosage: 160 MG, QD
     Route: 048
  57. FUROSEMIDE [Interacting]
     Active Substance: FUROSEMIDE
     Dosage: 40 MG, QD
     Route: 048
  58. FUROSEMIDE [Interacting]
     Active Substance: FUROSEMIDE
     Dosage: 40 MG, Q6H
     Route: 048
  59. FUROSEMIDE [Interacting]
     Active Substance: FUROSEMIDE
     Dosage: 40 MG, QID
     Route: 048
  60. FUROSEMIDE [Interacting]
     Active Substance: FUROSEMIDE
     Dosage: 160 MG, QD
     Route: 048
  61. FUROSEMIDE [Interacting]
     Active Substance: FUROSEMIDE
     Dosage: 160 MG, QD
     Route: 048
  62. FUROSEMIDE [Interacting]
     Active Substance: FUROSEMIDE
     Dosage: (40 MILLIGRAM(S)) IN 1 DAY
     Route: 048
  63. FUROSEMIDE [Interacting]
     Active Substance: FUROSEMIDE
     Dosage: 40 UNK
     Route: 048
  64. POTASSIUM CHLORIDE [Suspect]
     Active Substance: POTASSIUM CHLORIDE
     Indication: Product used for unknown indication
     Dosage: 100 MG, QD
     Route: 048
  65. POTASSIUM CHLORIDE [Suspect]
     Active Substance: POTASSIUM CHLORIDE
     Dosage: 100 MILLIGRAM, QD
     Route: 048
  66. CHOLECALCIFEROL [Suspect]
     Active Substance: CHOLECALCIFEROL
     Indication: Product used for unknown indication
     Dosage: 1 DF, QD
     Route: 048
  67. CHOLECALCIFEROL [Suspect]
     Active Substance: CHOLECALCIFEROL
     Dosage: 100 IU, QD (1-0-0-0)
     Route: 048
  68. CHOLECALCIFEROL [Suspect]
     Active Substance: CHOLECALCIFEROL
     Dosage: 100 UNK, QD
     Route: 048
  69. ACETAMINOPHEN [Suspect]
     Active Substance: ACETAMINOPHEN
     Indication: Product used for unknown indication
     Dosage: 90 DF, QD
     Route: 048
  70. ACETAMINOPHEN [Suspect]
     Active Substance: ACETAMINOPHEN
     Dosage: 1 DF, QD
     Route: 048
  71. ACETAMINOPHEN [Suspect]
     Active Substance: ACETAMINOPHEN
     Dosage: 30 GTT, TID
     Route: 048
  72. ACETAMINOPHEN [Suspect]
     Active Substance: ACETAMINOPHEN
     Dosage: 90 DF, QD
     Route: 048
  73. ACETAMINOPHEN [Suspect]
     Active Substance: ACETAMINOPHEN
     Dosage: 1.0 DOSAGE FORM (1 DOSAGE FORM),1 IN 1 DAY
     Route: 048
  74. ACETAMINOPHEN [Suspect]
     Active Substance: ACETAMINOPHEN
     Dosage: 90.0 DOSAGE FORM (90 DOSAGE FORM),1 IN 1 DAY
     Route: 048
  75. ACETAMINOPHEN [Suspect]
     Active Substance: ACETAMINOPHEN
     Dosage: 3.0 DOSAGE FORM (1 DOSAGE FORM),1 IN 8 HOUR
     Route: 048
  76. RAPAMUNE [Suspect]
     Active Substance: SIROLIMUS
     Indication: Product used for unknown indication
     Dosage: 1 MG,QD, (1-0-0-0)
     Route: 048
  77. RAPAMUNE [Suspect]
     Active Substance: SIROLIMUS
     Dosage: UNK UNK,UNK
     Route: 048
  78. RAPAMUNE [Suspect]
     Active Substance: SIROLIMUS
     Dosage: UNK UNK,UNK
     Route: 048
  79. RAPAMUNE [Suspect]
     Active Substance: SIROLIMUS
     Dosage: 1 MG,QD, (1-0-0-0)
     Route: 048
  80. RAPAMUNE [Suspect]
     Active Substance: SIROLIMUS
     Dosage: 1 MG,QD, (1-0-0-0)
     Route: 048
  81. RAPAMUNE [Suspect]
     Active Substance: SIROLIMUS
     Dosage: 1 MG,QD, (1-0-0-0)
     Route: 048
  82. RAPAMUNE [Suspect]
     Active Substance: SIROLIMUS
     Dosage: UNK UNK,UNK
     Route: 048
  83. RAPAMUNE [Suspect]
     Active Substance: SIROLIMUS
     Dosage: 1 MG,QD, (1-0-0-0)
     Route: 048
  84. RAPAMUNE [Suspect]
     Active Substance: SIROLIMUS
     Dosage: 1 MG,QD, (1-0-0-0)
     Route: 048
  85. SPIRIVA [Suspect]
     Active Substance: TIOTROPIUM BROMIDE MONOHYDRATE
     Indication: Product used for unknown indication
     Dosage: 18 UG, BID (1-0-1-0)
     Route: 055
  86. SPIRIVA [Suspect]
     Active Substance: TIOTROPIUM BROMIDE MONOHYDRATE
     Dosage: 18 UG, BID
     Route: 055
  87. SPIRIVA [Suspect]
     Active Substance: TIOTROPIUM BROMIDE MONOHYDRATE
     Dosage: 36 MICROGRAM, QD
     Route: 055
  88. SPIRIVA [Suspect]
     Active Substance: TIOTROPIUM BROMIDE MONOHYDRATE
     Dosage: 2 DOSAGE FORM, QD
     Route: 055
  89. PENTAZOCINE HYDROCHLORIDE [Suspect]
     Active Substance: PENTAZOCINE HYDROCHLORIDE
     Indication: Product used for unknown indication
     Dosage: 30 GTT, TID
     Route: 048
  90. PENTAZOCINE HYDROCHLORIDE [Suspect]
     Active Substance: PENTAZOCINE HYDROCHLORIDE
     Dosage: 90 DF, QD
     Route: 048
  91. PENTAZOCINE HYDROCHLORIDE [Suspect]
     Active Substance: PENTAZOCINE HYDROCHLORIDE
     Dosage: 1 DF, QD
     Route: 048
  92. PENTAZOCINE HYDROCHLORIDE [Suspect]
     Active Substance: PENTAZOCINE HYDROCHLORIDE
     Dosage: 90.0 DOSAGE FORM (90 DOSAGE FORM),1 IN 1 DAY
     Route: 048
  93. PENTAZOCINE HYDROCHLORIDE [Suspect]
     Active Substance: PENTAZOCINE HYDROCHLORIDE
     Dosage: (1 DOSAGE FORM) IN 1 DAY
     Route: 048
  94. PENTAZOCINE HYDROCHLORIDE [Suspect]
     Active Substance: PENTAZOCINE HYDROCHLORIDE
     Dosage: 1.0 DOSAGE FORM (1 DOSAGE FORM),1 IN 1 DAY
     Route: 048
  95. PENTAZOCINE HYDROCHLORIDE [Suspect]
     Active Substance: PENTAZOCINE HYDROCHLORIDE
     Dosage: UNK, QD 90 DOSAGE FORM) IN 1 DAY
  96. MAGNESIUM [Suspect]
     Active Substance: MAGNESIUM
     Indication: Product used for unknown indication
     Dosage: 2 DOSAGE FORM, BID
     Route: 048
  97. MAGNESIUM [Suspect]
     Active Substance: MAGNESIUM
     Dosage: 2 DF, QD
     Route: 048
  98. MAGNESIUM [Suspect]
     Active Substance: MAGNESIUM
     Dosage: UNK, UNK, BID
     Route: 048
  99. MAGNESIUM [Suspect]
     Active Substance: MAGNESIUM
     Dosage: 1 DOSAGE FORM, QD
     Route: 048
  100. MAGNESIUM [Suspect]
     Active Substance: MAGNESIUM
     Dosage: UNK, UNK, BID
     Route: 048
  101. MAGNESIUM [Suspect]
     Active Substance: MAGNESIUM
     Dosage: 1 DOSAGE FORM, QD
     Route: 048
  102. MAGNESIUM [Suspect]
     Active Substance: MAGNESIUM
     Dosage: 2 DOSAGE FORM, BID
     Route: 048
  103. MAGNESIUM [Suspect]
     Active Substance: MAGNESIUM
     Dosage: 2 DOSAGE FORM, BID
     Route: 048
  104. FENTANYL [Suspect]
     Active Substance: FENTANYL
     Indication: Product used for unknown indication
     Dosage: 50 UG,QD
     Route: 048
  105. METAMIZOLE SODIUM [Suspect]
     Active Substance: METAMIZOLE SODIUM
     Indication: Product used for unknown indication
     Dosage: 30 DROP, TID
     Route: 048
  106. METAMIZOLE SODIUM [Suspect]
     Active Substance: METAMIZOLE SODIUM
     Dosage: 90.0 DROP(S) (30 DROP(S)),1 IN 8 HOUR
     Route: 048
  107. FLUTICASONE PROPIONATE\SALMETEROL XINAFOATE [Suspect]
     Active Substance: FLUTICASONE PROPIONATE\SALMETEROL XINAFOATE
     Indication: Product used for unknown indication
     Dosage: 1 DF, QD
     Route: 055
  108. FLUTICASONE PROPIONATE\SALMETEROL XINAFOATE [Suspect]
     Active Substance: FLUTICASONE PROPIONATE\SALMETEROL XINAFOATE
     Dosage: 2 DF, QD
     Route: 055
  109. ACETAMINOPHEN\CAFFEINE\PROPYPHENAZONE [Suspect]
     Active Substance: ACETAMINOPHEN\CAFFEINE\PROPYPHENAZONE
     Indication: Product used for unknown indication
     Dosage: 30 GTT DROPS, Q8H
     Route: 048
  110. ACETAMINOPHEN\CAFFEINE\PROPYPHENAZONE [Suspect]
     Active Substance: ACETAMINOPHEN\CAFFEINE\PROPYPHENAZONE
     Dosage: 30 GTT, TID (30 TROPFEN, 1-1-1-0) (ALSO REPORTED AS 90 GTT, QD)
     Route: 048
  111. ACETAMINOPHEN\CAFFEINE\PROPYPHENAZONE [Suspect]
     Active Substance: ACETAMINOPHEN\CAFFEINE\PROPYPHENAZONE
     Dosage: UNK
  112. BENSERAZIDE\LEVODOPA [Suspect]
     Active Substance: BENSERAZIDE\LEVODOPA
     Indication: Product used for unknown indication
     Dosage: 100 MG, QD (1-0-2.5-0)
     Route: 048
  113. BENSERAZIDE\LEVODOPA [Suspect]
     Active Substance: BENSERAZIDE\LEVODOPA
     Dosage: 100 MG BID
     Route: 048
  114. BENSERAZIDE\LEVODOPA [Suspect]
     Active Substance: BENSERAZIDE\LEVODOPA
     Dosage: 1 DF, QD
     Route: 055
  115. BENSERAZIDE\LEVODOPA [Suspect]
     Active Substance: BENSERAZIDE\LEVODOPA
     Dosage: 1 DF, QD
     Route: 055
  116. BENSERAZIDE\LEVODOPA [Suspect]
     Active Substance: BENSERAZIDE\LEVODOPA
     Dosage: 100 MG, QD
     Route: 048
  117. BENSERAZIDE\LEVODOPA [Suspect]
     Active Substance: BENSERAZIDE\LEVODOPA
     Dosage: 100 MG, QD
     Route: 048
  118. BENSERAZIDE\LEVODOPA [Suspect]
     Active Substance: BENSERAZIDE\LEVODOPA
     Dosage: 100 MG, QD
     Route: 048
  119. POTASSIUM BICARBONATE\POTASSIUM CITRATE [Suspect]
     Active Substance: POTASSIUM BICARBONATE\POTASSIUM CITRATE
     Indication: Product used for unknown indication
     Dosage: UNK
     Route: 048
  120. POTASSIUM BICARBONATE\POTASSIUM CITRATE [Suspect]
     Active Substance: POTASSIUM BICARBONATE\POTASSIUM CITRATE
     Dosage: 100 MG, QD (1-0-0-0)
     Route: 048
  121. POTASSIUM BICARBONATE\POTASSIUM CITRATE [Suspect]
     Active Substance: POTASSIUM BICARBONATE\POTASSIUM CITRATE
     Dosage: 100 MG, QD (1-0-0-0)
     Route: 048
  122. POTASSIUM BICARBONATE\POTASSIUM CITRATE [Suspect]
     Active Substance: POTASSIUM BICARBONATE\POTASSIUM CITRATE
     Dosage: 100 MG, QD (1-0-0-0)
     Route: 048
  123. POTASSIUM BICARBONATE\POTASSIUM CITRATE [Suspect]
     Active Substance: POTASSIUM BICARBONATE\POTASSIUM CITRATE
     Dosage: 100 MG, QD (1-0-0-0)
     Route: 048
  124. POTASSIUM BICARBONATE\POTASSIUM CITRATE [Suspect]
     Active Substance: POTASSIUM BICARBONATE\POTASSIUM CITRATE
     Dosage: 100 MG, QD (1-0-0-0)
     Route: 048
  125. POTASSIUM BICARBONATE\POTASSIUM CITRATE [Suspect]
     Active Substance: POTASSIUM BICARBONATE\POTASSIUM CITRATE
     Dosage: UNK
     Route: 048
  126. ESIDRIX [Suspect]
     Active Substance: HYDROCHLOROTHIAZIDE
     Indication: Product used for unknown indication
     Dosage: 25 MG, QD (1-0-0-0)
     Route: 048
  127. URSODIOL [Suspect]
     Active Substance: URSODIOL
     Indication: Product used for unknown indication
     Dosage: 500 MG, BID (1-0-1-0)
     Route: 048
  128. URSODIOL [Suspect]
     Active Substance: URSODIOL
     Dosage: 500 MG, BID (1-0-1-0)
     Route: 048
  129. URSODIOL [Suspect]
     Active Substance: URSODIOL
     Dosage: 1000 MG (500 MG, BID)
     Route: 048
  130. URSODIOL [Suspect]
     Active Substance: URSODIOL
     Dosage: 500 MG, BID (1-0-1-0)
     Route: 048
  131. URSODIOL [Suspect]
     Active Substance: URSODIOL
     Dosage: 1000 MG (500 MG, BID)
     Route: 048
  132. URSODIOL [Suspect]
     Active Substance: URSODIOL
     Dosage: 1000 MG (500 MG, BID)
     Route: 048
  133. URSODIOL [Suspect]
     Active Substance: URSODIOL
     Dosage: 500 MG, BID (1-0-1-0)
     Route: 048
  134. URSODIOL [Suspect]
     Active Substance: URSODIOL
     Dosage: 500 MG, BID (1-0-1-0)
     Route: 048
  135. URSODIOL [Suspect]
     Active Substance: URSODIOL
     Dosage: 500 MG, BID (1-0-1-0)
     Route: 048
  136. URSODIOL [Suspect]
     Active Substance: URSODIOL
     Dosage: 1000 MG (500 MG, BID)
     Route: 048
  137. MAGNESIUM CITRATE\MAGNESIUM OXIDE\POTASSIUM CITRATE\PYRIDOXINE HYDROCH [Suspect]
     Active Substance: MAGNESIUM CITRATE\MAGNESIUM OXIDE\POTASSIUM CITRATE\PYRIDOXINE HYDROCHLORIDE
     Indication: Product used for unknown indication
     Dosage: 1 DOSAGE FORM, QD (1 DF, QD )
     Route: 048
  138. MAGNESIUM CITRATE\MAGNESIUM OXIDE\POTASSIUM CITRATE\PYRIDOXINE HYDROCH [Suspect]
     Active Substance: MAGNESIUM CITRATE\MAGNESIUM OXIDE\POTASSIUM CITRATE\PYRIDOXINE HYDROCHLORIDE
     Dosage: 2 DOSAGE FORM, QD (2 DF, QD )
     Route: 048
  139. MAGNESIUM CITRATE\MAGNESIUM OXIDE\POTASSIUM CITRATE\PYRIDOXINE HYDROCH [Suspect]
     Active Substance: MAGNESIUM CITRATE\MAGNESIUM OXIDE\POTASSIUM CITRATE\PYRIDOXINE HYDROCHLORIDE
     Dosage: 2 DOSAGE FORM, QD (2 DF, QD )
     Route: 048
  140. MAGNESIUM CITRATE\MAGNESIUM OXIDE\POTASSIUM CITRATE\PYRIDOXINE HYDROCH [Suspect]
     Active Substance: MAGNESIUM CITRATE\MAGNESIUM OXIDE\POTASSIUM CITRATE\PYRIDOXINE HYDROCHLORIDE
     Dosage: 2 DOSAGE FORM, QD (2 DF, QD )
     Route: 048
  141. MAGNESIUM CITRATE\MAGNESIUM OXIDE\POTASSIUM CITRATE\PYRIDOXINE HYDROCH [Suspect]
     Active Substance: MAGNESIUM CITRATE\MAGNESIUM OXIDE\POTASSIUM CITRATE\PYRIDOXINE HYDROCHLORIDE
     Dosage: 2 DOSAGE FORM, QD (2 DF, QD )
     Route: 048
  142. MAGNESIUM CITRATE\MAGNESIUM OXIDE\POTASSIUM CITRATE\PYRIDOXINE HYDROCH [Suspect]
     Active Substance: MAGNESIUM CITRATE\MAGNESIUM OXIDE\POTASSIUM CITRATE\PYRIDOXINE HYDROCHLORIDE
     Dosage: UNK UNK, BID
     Route: 048
  143. MAGNESIUM CITRATE\MAGNESIUM OXIDE\POTASSIUM CITRATE\PYRIDOXINE HYDROCH [Suspect]
     Active Substance: MAGNESIUM CITRATE\MAGNESIUM OXIDE\POTASSIUM CITRATE\PYRIDOXINE HYDROCHLORIDE
     Dosage: 2 UNK, QD
     Route: 048
  144. MAGNESIUM CITRATE\MAGNESIUM OXIDE\POTASSIUM CITRATE\PYRIDOXINE HYDROCH [Suspect]
     Active Substance: MAGNESIUM CITRATE\MAGNESIUM OXIDE\POTASSIUM CITRATE\PYRIDOXINE HYDROCHLORIDE
     Dosage: 2 DOSAGE FORM, QD (2 DF, QD )
     Route: 048
  145. MAGNESIUM CITRATE\MAGNESIUM OXIDE\POTASSIUM CITRATE\PYRIDOXINE HYDROCH [Suspect]
     Active Substance: MAGNESIUM CITRATE\MAGNESIUM OXIDE\POTASSIUM CITRATE\PYRIDOXINE HYDROCHLORIDE
     Dosage: 2 DOSAGE FORM, QD (2 DF, QD )
     Route: 048
  146. MAGNESIUM CITRATE\MAGNESIUM OXIDE\POTASSIUM CITRATE\PYRIDOXINE HYDROCH [Suspect]
     Active Substance: MAGNESIUM CITRATE\MAGNESIUM OXIDE\POTASSIUM CITRATE\PYRIDOXINE HYDROCHLORIDE
     Dosage: 2 DOSAGE FORM, QD (2 DF, QD )
     Route: 048
  147. MAGNESIUM CITRATE\MAGNESIUM OXIDE\POTASSIUM CITRATE\PYRIDOXINE HYDROCH [Suspect]
     Active Substance: MAGNESIUM CITRATE\MAGNESIUM OXIDE\POTASSIUM CITRATE\PYRIDOXINE HYDROCHLORIDE
     Dosage: 1 DOSAGE FORM, QD (1 DF, QD )
     Route: 048
  148. MAGNESIUM CITRATE\MAGNESIUM OXIDE\POTASSIUM CITRATE\PYRIDOXINE HYDROCH [Suspect]
     Active Substance: MAGNESIUM CITRATE\MAGNESIUM OXIDE\POTASSIUM CITRATE\PYRIDOXINE HYDROCHLORIDE
     Dosage: 1 DOSAGE FORM, QD (1 DF, QD )
     Route: 048
  149. MAGNESIUM CITRATE\MAGNESIUM OXIDE\POTASSIUM CITRATE\PYRIDOXINE HYDROCH [Suspect]
     Active Substance: MAGNESIUM CITRATE\MAGNESIUM OXIDE\POTASSIUM CITRATE\PYRIDOXINE HYDROCHLORIDE
     Dosage: UNK UNK, BID
     Route: 048
  150. ACETAMINOPHEN\PENTAZOCINE HYDROCHLORIDE [Suspect]
     Active Substance: ACETAMINOPHEN\PENTAZOCINE HYDROCHLORIDE
     Indication: Product used for unknown indication
     Dosage: 90 DOSAGE FORM, QD
     Route: 048
  151. ACETAMINOPHEN\PENTAZOCINE HYDROCHLORIDE [Suspect]
     Active Substance: ACETAMINOPHEN\PENTAZOCINE HYDROCHLORIDE
     Dosage: 1 DOSAGE FORM, QD
     Route: 048
  152. ACETAMINOPHEN\PENTAZOCINE HYDROCHLORIDE [Suspect]
     Active Substance: ACETAMINOPHEN\PENTAZOCINE HYDROCHLORIDE
     Dosage: 30 GTT DROPS, TID
     Route: 048
  153. ACETAMINOPHEN\PENTAZOCINE HYDROCHLORIDE [Suspect]
     Active Substance: ACETAMINOPHEN\PENTAZOCINE HYDROCHLORIDE
     Dosage: 30 GTT DROPS, TID
     Route: 048
  154. ACETAMINOPHEN\PENTAZOCINE HYDROCHLORIDE [Suspect]
     Active Substance: ACETAMINOPHEN\PENTAZOCINE HYDROCHLORIDE
     Dosage: 1 DOSAGE FORM, QD
     Route: 048
  155. ACETAMINOPHEN\PENTAZOCINE HYDROCHLORIDE [Suspect]
     Active Substance: ACETAMINOPHEN\PENTAZOCINE HYDROCHLORIDE
     Dosage: 90 DOSAGE FORM, QD
     Route: 048
  156. ACETAMINOPHEN\PENTAZOCINE HYDROCHLORIDE [Suspect]
     Active Substance: ACETAMINOPHEN\PENTAZOCINE HYDROCHLORIDE
     Dosage: 90 DF QD
     Route: 048
  157. ACETAMINOPHEN\PENTAZOCINE HYDROCHLORIDE [Suspect]
     Active Substance: ACETAMINOPHEN\PENTAZOCINE HYDROCHLORIDE
     Dosage: 90 DOSAGE FORM, QD
     Route: 048
  158. ACETAMINOPHEN\PENTAZOCINE HYDROCHLORIDE [Suspect]
     Active Substance: ACETAMINOPHEN\PENTAZOCINE HYDROCHLORIDE
     Dosage: 1 DF, QD
     Route: 048
  159. ACETAMINOPHEN\PENTAZOCINE HYDROCHLORIDE [Suspect]
     Active Substance: ACETAMINOPHEN\PENTAZOCINE HYDROCHLORIDE
     Dosage: 1 DOSAGE FORM) IN 1 DAY
     Route: 048
  160. ACETAMINOPHEN\PENTAZOCINE HYDROCHLORIDE [Suspect]
     Active Substance: ACETAMINOPHEN\PENTAZOCINE HYDROCHLORIDE
     Dosage: (90 DOSAGE FORM) IN 1 DAY
  161. ACETAMINOPHEN\PENTAZOCINE HYDROCHLORIDE [Suspect]
     Active Substance: ACETAMINOPHEN\PENTAZOCINE HYDROCHLORIDE
     Dosage: 30 GTT DROPS, Q8H
     Route: 048
  162. ALUMINUM HYDROXIDE\MAGNESIUM HYDROXIDE [Suspect]
     Active Substance: ALUMINUM HYDROXIDE\MAGNESIUM HYDROXIDE
     Indication: Product used for unknown indication
     Dosage: 200 DOSAGE FORM, QD
     Route: 048
  163. FLUTICASONE PROPIONATE\SALMETEROL XINAFOATE [Suspect]
     Active Substance: FLUTICASONE PROPIONATE\SALMETEROL XINAFOATE
     Indication: Product used for unknown indication
     Dosage: 2 DF, QD
     Route: 055
  164. FLUTICASONE PROPIONATE\SALMETEROL XINAFOATE [Suspect]
     Active Substance: FLUTICASONE PROPIONATE\SALMETEROL XINAFOATE
     Dosage: 1 DF, QD
     Route: 055
  165. TIOTROPIUM BROMIDE [Suspect]
     Active Substance: TIOTROPIUM BROMIDE
     Indication: Product used for unknown indication
     Dosage: 18 MICROGRAM, Q12H (18 UG, BID)
     Route: 055
  166. TIOTROPIUM BROMIDE [Suspect]
     Active Substance: TIOTROPIUM BROMIDE
     Dosage: 2 DOSAGE FORM, QD
     Route: 055
  167. TIOTROPIUM BROMIDE [Suspect]
     Active Substance: TIOTROPIUM BROMIDE
     Dosage: 36 MICROGRAM, QD
     Route: 055
  168. TIOTROPIUM BROMIDE [Suspect]
     Active Substance: TIOTROPIUM BROMIDE
     Dosage: 18 MICROGRAM, Q12H (18 UG,BID )
     Route: 055
  169. TIOTROPIUM BROMIDE [Suspect]
     Active Substance: TIOTROPIUM BROMIDE
     Dosage: 36 UG, QD, 18 UG, BID (1-0-1-0)
     Route: 055
  170. TIOTROPIUM BROMIDE [Suspect]
     Active Substance: TIOTROPIUM BROMIDE
     Dosage: 36 UG, QD, 18 UG, BID (1-0-1-0)
     Route: 055
  171. TIOTROPIUM BROMIDE [Suspect]
     Active Substance: TIOTROPIUM BROMIDE
     Dosage: 36 UG, QD, 18 UG, BID (1-0-1-0)
     Route: 055
  172. TIOTROPIUM BROMIDE [Suspect]
     Active Substance: TIOTROPIUM BROMIDE
     Dosage: 36 UG, QD, 18 UG, BID (1-0-1-0)
     Route: 055
  173. TIOTROPIUM BROMIDE [Suspect]
     Active Substance: TIOTROPIUM BROMIDE
     Dosage: 36 UG, QD, 18 UG, BID (1-0-1-0)
     Route: 055
  174. TIOTROPIUM BROMIDE [Suspect]
     Active Substance: TIOTROPIUM BROMIDE
     Dosage: 18 MICROGRAM, Q12H (18 UG,BID )
     Route: 055
  175. TIOTROPIUM BROMIDE [Suspect]
     Active Substance: TIOTROPIUM BROMIDE
     Dosage: 1 DF, QD
     Route: 055
  176. TIOTROPIUM BROMIDE [Suspect]
     Active Substance: TIOTROPIUM BROMIDE
     Dosage: 36 MICROGRAM, BID
     Route: 055
  177. SIROLIMUS [Suspect]
     Active Substance: SIROLIMUS
     Indication: Product used for unknown indication
     Dosage: 1 MG, QD
     Route: 048
  178. PANTOPRAZOLE SODIUM [Suspect]
     Active Substance: PANTOPRAZOLE SODIUM
     Indication: Product used for unknown indication
     Dosage: 40 MG, QD
     Route: 048
  179. HYDROCHLOROTHIAZIDE [Suspect]
     Active Substance: HYDROCHLOROTHIAZIDE
     Indication: Product used for unknown indication
     Dosage: 25 MG, QD
     Route: 048
  180. HYDROCHLOROTHIAZIDE [Suspect]
     Active Substance: HYDROCHLOROTHIAZIDE
     Dosage: 25 MG, QD (1-0-0-0)
     Route: 048
  181. URSODIOL [Suspect]
     Active Substance: URSODIOL
     Indication: Product used for unknown indication
     Dosage: 500 MG,BID
     Route: 048
  182. URSODIOL [Suspect]
     Active Substance: URSODIOL
     Dosage: 1000 MILLIGRAM, Q12H (500 MG, BID)
     Route: 048
  183. URSODIOL [Suspect]
     Active Substance: URSODIOL
     Dosage: 500 MG, Q12H
     Route: 048
  184. FENTANYL [Suspect]
     Active Substance: FENTANYL
     Indication: Product used for unknown indication
     Dosage: 50 UG, QD
     Route: 048
  185. FENTANYL [Suspect]
     Active Substance: FENTANYL
     Dosage: 50 UG, QD
     Route: 048
  186. CHOLECALCIFEROL [Suspect]
     Active Substance: CHOLECALCIFEROL
     Indication: Product used for unknown indication
     Dosage: 100 IU, QD
     Route: 048
  187. CHOLECALCIFEROL [Suspect]
     Active Substance: CHOLECALCIFEROL
     Dosage: 1 DOSAGE FORM, QD (1 DF, QD )
     Route: 048
  188. CHOLECALCIFEROL [Suspect]
     Active Substance: CHOLECALCIFEROL
     Dosage: 100 UNK, QD
     Route: 048
  189. CHOLECALCIFEROL [Suspect]
     Active Substance: CHOLECALCIFEROL
     Dosage: 100 IU, QD
     Route: 048
  190. CHOLECALCIFEROL [Suspect]
     Active Substance: CHOLECALCIFEROL
     Dosage: 1 DOSAGE FORM, QD (1 DF, QD )
     Route: 048
  191. CHOLECALCIFEROL [Suspect]
     Active Substance: CHOLECALCIFEROL
     Dosage: 100 UNK, QD,100 OT, QD (100 IE, 1-0-0-0)
     Route: 048
  192. CHOLECALCIFEROL [Suspect]
     Active Substance: CHOLECALCIFEROL
     Dosage: 100 UNK, QD
     Route: 048
  193. AMBROXOL [Suspect]
     Active Substance: AMBROXOL
     Indication: Product used for unknown indication
     Dosage: 30 DROP, PRN
     Route: 048
  194. BENSERAZIDE HYDROCHLORIDE [Suspect]
     Active Substance: BENSERAZIDE HYDROCHLORIDE
     Indication: Product used for unknown indication
     Dosage: 100 MILLIGRAM, Q12H, UNK (1-0-2.5-0) (100 MG)
     Route: 048
  195. BENSERAZIDE HYDROCHLORIDE [Suspect]
     Active Substance: BENSERAZIDE HYDROCHLORIDE
     Dosage: 200.0 MILLIGRAM(S) (100 MILLIGRAM(S)),1 IN 12 HOUR
     Route: 048
  196. BENSERAZIDE HYDROCHLORIDE [Suspect]
     Active Substance: BENSERAZIDE HYDROCHLORIDE
     Dosage: 100 MG, BID
     Route: 048
  197. BENSERAZIDE HYDROCHLORIDE [Suspect]
     Active Substance: BENSERAZIDE HYDROCHLORIDE
     Dosage: 100 MG, UNK (1-0-2.5-0) (100 MG)
     Route: 048
  198. MAGNESIUM [Suspect]
     Active Substance: MAGNESIUM
     Indication: Product used for unknown indication
     Dosage: 2 DF, QD
     Route: 048
  199. BENSERAZIDE\LEVODOPA [Suspect]
     Active Substance: BENSERAZIDE\LEVODOPA
     Indication: Product used for unknown indication
     Dosage: 1 DOSAGE FORM, QD (1 DF, QD)
     Route: 055
  200. BENSERAZIDE\LEVODOPA [Suspect]
     Active Substance: BENSERAZIDE\LEVODOPA
     Dosage: 100 MILLIGRAM, Q12H (100MG, BID)
     Route: 048
  201. BENSERAZIDE\LEVODOPA [Suspect]
     Active Substance: BENSERAZIDE\LEVODOPA
     Dosage: 100 MILLIGRAM, QD (100 MG, QD)
     Route: 048
  202. BENSERAZIDE\LEVODOPA [Suspect]
     Active Substance: BENSERAZIDE\LEVODOPA
     Dosage: 200.0 MILLIGRAM(S) (100 MILLIGRAM(S)),1 IN 12 HOUR
  203. BENSERAZIDE\LEVODOPA [Suspect]
     Active Substance: BENSERAZIDE\LEVODOPA
     Dosage: 100 MG, QD
     Route: 048
  204. BENSERAZIDE\LEVODOPA [Suspect]
     Active Substance: BENSERAZIDE\LEVODOPA
     Dosage: 1 DOSAGE FORM) IN 1 DAY
     Route: 048
  205. BENSERAZIDE\LEVODOPA [Suspect]
     Active Substance: BENSERAZIDE\LEVODOPA
     Dosage: 100.0 MILLIGRAM(S) (100 MILLIGRAM(S)),1 IN 1 DAY
     Route: 048
  206. ACETAMINOPHEN\CAFFEINE\PHENYLEPHRINE HYDROCHLORIDE [Suspect]
     Active Substance: ACETAMINOPHEN\CAFFEINE\PHENYLEPHRINE HYDROCHLORIDE
     Dosage: 30 GTT DROPS, TID
     Route: 048
  207. ACETAMINOPHEN\CAFFEINE\PHENYLEPHRINE HYDROCHLORIDE [Suspect]
     Active Substance: ACETAMINOPHEN\CAFFEINE\PHENYLEPHRINE HYDROCHLORIDE
     Dosage: 30 GTT DROPS, Q8H
     Route: 048

REACTIONS (3)
  - General physical health deterioration [Unknown]
  - Product prescribing error [Unknown]
  - Drug interaction [Unknown]

NARRATIVE: CASE EVENT DATE: 20150916
